FAERS Safety Report 20058278 (Version 1)
Quarter: 2021Q4

REPORT INFORMATION
  Report Type: Spontaneous
  Country: SE (occurrence: SE)
  Receive Date: 20211111
  Receipt Date: 20211111
  Transmission Date: 20220303
  Serious: Yes (Hospitalization)
  Sender: FDA-Public Use
  Company Number: None

PATIENT
  Age: 38 Year
  Sex: Male

DRUGS (1)
  1. ALPRAZOLAM [Suspect]
     Active Substance: ALPRAZOLAM
     Dosage: UNK
     Dates: start: 202110, end: 202110

REACTIONS (3)
  - Chest pain [Unknown]
  - Toxicity to various agents [Unknown]
  - Akathisia [Unknown]

NARRATIVE: CASE EVENT DATE: 20211001
